FAERS Safety Report 23679059 (Version 1)
Quarter: 2024Q1

REPORT INFORMATION
  Report Type: Spontaneous
  Country: US (occurrence: US)
  Receive Date: 20240327
  Receipt Date: 20240327
  Transmission Date: 20240410
  Serious: Yes (Other)
  Sender: FDA-Public Use
  Company Number: US-BAUSCH-BL-2024-004764

PATIENT
  Age: 12 Month
  Sex: Male

DRUGS (3)
  1. ERYTHROMYCIN [Suspect]
     Active Substance: ERYTHROMYCIN
     Indication: Impaired gastric emptying
     Route: 065
  2. ACARBOSE [Concomitant]
     Active Substance: ACARBOSE
     Indication: Hypoglycaemia
  3. STARCH, CORN [Concomitant]
     Active Substance: STARCH, CORN
     Indication: Hypoglycaemia

REACTIONS (1)
  - Hypoglycaemia [Not Recovered/Not Resolved]
